FAERS Safety Report 21608970 (Version 3)
Quarter: 2023Q1

REPORT INFORMATION
  Report Type: Report from Study
  Country: US (occurrence: US)
  Receive Date: 20221117
  Receipt Date: 20230113
  Transmission Date: 20230418
  Serious: No
  Sender: FDA-Public Use
  Company Number: US-AMGEN-USASP2022193191

PATIENT
  Age: 86 Year
  Sex: Female

DRUGS (2)
  1. REPATHA [Suspect]
     Active Substance: EVOLOCUMAB
     Indication: Hypercholesterolaemia
     Dosage: 140 MILLIGRAM, Q2WK
     Route: 058
     Dates: start: 20221031
  2. REPATHA [Suspect]
     Active Substance: EVOLOCUMAB
     Indication: Cardiovascular disorder

REACTIONS (7)
  - Hypophagia [Unknown]
  - Weight decreased [Not Recovered/Not Resolved]
  - Abdominal discomfort [Recovered/Resolved]
  - Dyspepsia [Unknown]
  - Injection site reaction [Unknown]
  - Nausea [Recovered/Resolved]
  - Hypersensitivity [Unknown]

NARRATIVE: CASE EVENT DATE: 20220101
